FAERS Safety Report 15083722 (Version 1)
Quarter: 2018Q2

REPORT INFORMATION
  Report Type: Spontaneous
  Country: GB (occurrence: GB)
  Receive Date: 20180628
  Receipt Date: 20180628
  Transmission Date: 20180711
  Serious: Yes (Other)
  Sender: FDA-Public Use
  Company Number: GB-MYLANLABS-2018M1045601

PATIENT
  Age: 21 Year
  Sex: Male

DRUGS (1)
  1. VALPROIC ACID. [Suspect]
     Active Substance: VALPROIC ACID
     Indication: PRODUCT USED FOR UNKNOWN INDICATION
     Dosage: MATERNAL DOSE: UNKNOWN
     Route: 064

REACTIONS (10)
  - Memory impairment [Unknown]
  - Coordination abnormal [Unknown]
  - Deafness [Unknown]
  - Foetal exposure during pregnancy [Recovered/Resolved]
  - Mobility decreased [Unknown]
  - Foetal anticonvulsant syndrome [Unknown]
  - Astigmatism [Unknown]
  - Speech disorder developmental [Unknown]
  - Myopia [Unknown]
  - Congenital inguinal hernia [Unknown]
